FAERS Safety Report 10867949 (Version 1)
Quarter: 2015Q1

REPORT INFORMATION
  Report Type: Spontaneous
  Country: US (occurrence: US)
  Receive Date: 20150225
  Receipt Date: 20150225
  Transmission Date: 20150721
  Serious: No
  Sender: FDA-Public Use
  Company Number: US-VIVUS-2014V1000651

PATIENT
  Age: 79 Year
  Sex: Male
  Weight: 83.54 kg

DRUGS (11)
  1. GLUCOSAMINE [Concomitant]
     Active Substance: GLUCOSAMINE
  2. WARFARIN [Concomitant]
     Active Substance: WARFARIN
     Dosage: 1MG
  3. STENDRA [Suspect]
     Active Substance: AVANAFIL
     Indication: ERECTILE DYSFUNCTION
     Dosage: 100MG AS NEEDED
     Route: 048
     Dates: start: 20141109
  4. SODIUM BICARBONATE. [Concomitant]
     Active Substance: SODIUM BICARBONATE
  5. DIGOXIN. [Concomitant]
     Active Substance: DIGOXIN
  6. AMLODIPINE [Concomitant]
     Active Substance: AMLODIPINE BESYLATE
  7. VITAMIN B [Concomitant]
     Active Substance: VITAMIN B
  8. ATORVASTATIN [Concomitant]
     Active Substance: ATORVASTATIN
  9. WARFARIN [Concomitant]
     Active Substance: WARFARIN
     Dosage: 6MG
  10. IRON [Concomitant]
     Active Substance: IRON
  11. METOPROLOL [Concomitant]
     Active Substance: METOPROLOL

REACTIONS (2)
  - Flushing [Recovered/Resolved]
  - Drug ineffective [Unknown]

NARRATIVE: CASE EVENT DATE: 20141109
